FAERS Safety Report 8507210-2 (Version None)
Quarter: 2012Q3

REPORT INFORMATION
  Report Type: 
  Country: None (occurrence: None)
  Receive Date: 20120712
  Receipt Date: 20120629
  Transmission Date: 20120928
  Serious: Yes (Life-Threatening, Disabling, Other)
  Sender: FDA-Public Use
  Company Number: JP-MSD-1204USA01520

PATIENT

DRUGS (2)
  1. LANTUS [Concomitant]
     Dosage: 14 IU, UNK
     Route: 058
     Dates: start: 20111230
  2. JANUVIA [Suspect]
     Indication: DIABETES MELLITUS MANAGEMENT
     Dosage: 50 MG, QD
     Route: 048
     Dates: start: 20111230, end: 20120406

REACTIONS (4)
  - CONVULSION [None]
  - RHEUMATOID ARTHRITIS [None]
  - ALTERED STATE OF CONSCIOUSNESS [None]
  - DEMENTIA [None]
